FAERS Safety Report 18091522 (Version 1)
Quarter: 2020Q3

REPORT INFORMATION
  Report Type: Spontaneous
  Country: US (occurrence: US)
  Receive Date: 20200729
  Receipt Date: 20200729
  Transmission Date: 20201103
  Serious: Yes (Hospitalization)
  Sender: FDA-Public Use
  Company Number: None

PATIENT
  Sex: Female

DRUGS (5)
  1. LEUPROLIDE 1MG/0.2ML MDV [Suspect]
     Active Substance: LEUPROLIDE
     Indication: INFERTILITY FEMALE
     Route: 058
     Dates: start: 20190513
  2. ATORVASTATIN [Suspect]
     Active Substance: ATORVASTATIN
  3. METOPROLOL. [Suspect]
     Active Substance: METOPROLOL
     Indication: INFERTILITY FEMALE
     Route: 058
     Dates: start: 20190513
  4. FOLLISTIM [Suspect]
     Active Substance: FOLLITROPIN
  5. BRILINTA [Suspect]
     Active Substance: TICAGRELOR

REACTIONS (1)
  - Myocardial infarction [None]
